FAERS Safety Report 5293079-9 (Version None)
Quarter: 2007Q2

REPORT INFORMATION
  Report Type: 
  Country: None (occurrence: None)
  Receive Date: 20070411
  Receipt Date: 20070404
  Transmission Date: 20071010
  Serious: Yes (Life-Threatening, Hospitalization)
  Sender: FDA-Public Use
  Company Number: PHRM2007FR00945

PATIENT
  Age: 79 Year
  Sex: Female

DRUGS (5)
  1. ARCALION [Suspect]
     Dosage: UNK, UNK
     Route: 048
     Dates: start: 20060501
  2. PRIMPERAN INJ [Suspect]
  3. TRIFLUCAN [Suspect]
  4. DESLORATADINE [Suspect]
  5. ESIDRIX [Suspect]
     Route: 048

REACTIONS (14)
  - DERMATITIS BULLOUS [None]
  - FALL [None]
  - INJURY [None]
  - LOSS OF CONSCIOUSNESS [None]
  - LUPUS-LIKE SYNDROME [None]
  - PROTEINURIA [None]
  - PRURITUS [None]
  - RASH ERYTHEMATOUS [None]
  - RENAL FAILURE ACUTE [None]
  - SJOGREN'S SYNDROME [None]
  - SODIUM RETENTION [None]
  - STAPHYLOCOCCAL SEPSIS [None]
  - STEVENS-JOHNSON SYNDROME [None]
  - TOXIC SKIN ERUPTION [None]
